FAERS Safety Report 23513552 (Version 1)
Quarter: 2024Q1

REPORT INFORMATION
  Report Type: Spontaneous
  Country: US (occurrence: US)
  Receive Date: 20240212
  Receipt Date: 20240212
  Transmission Date: 20240410
  Serious: No
  Sender: FDA-Public Use
  Company Number: US-GLENMARK PHARMACEUTICALS-2024GMK088440

PATIENT

DRUGS (1)
  1. RYALTRIS [Suspect]
     Active Substance: MOMETASONE FUROATE MONOHYDRATE\OLOPATADINE HYDROCHLORIDE
     Indication: Product used for unknown indication
     Dosage: 2 DOSAGE FORM, BID (IN EACH NOSTRIL)
     Route: 045
     Dates: start: 20231003, end: 20231206

REACTIONS (4)
  - Weight decreased [Unknown]
  - Ear discomfort [Unknown]
  - Throat irritation [Unknown]
  - Nasal discomfort [Unknown]
